FAERS Safety Report 4988339-2 (Version None)
Quarter: 2006Q2

REPORT INFORMATION
  Report Type: 
  Country: None (occurrence: None)
  Receive Date: 20060502
  Receipt Date: 20060426
  Transmission Date: 20061013
  Serious: Yes (Other)
  Sender: FDA-Public Use
  Company Number: GB-BOEHRINGER INGELHEIM PHARMACEUTICALS, INC.-2006-UK-02306UK

PATIENT
  Sex: Male

DRUGS (1)
  1. APTIVUS [Suspect]

REACTIONS (1)
  - RHABDOMYOLYSIS [None]
